FAERS Safety Report 8268286-3 (Version None)
Quarter: 2012Q2

REPORT INFORMATION
  Report Type: 
  Country: None (occurrence: None)
  Receive Date: 20120409
  Receipt Date: 20120326
  Transmission Date: 20120825
  Serious: Yes (Death, Hospitalization)
  Sender: FDA-Public Use
  Company Number: ES-ROCHE-802728

PATIENT
  Sex: Male
  Weight: 58.1 kg

DRUGS (6)
  1. CORTICOSTEROIDS (UNK INGREDIENTS) [Concomitant]
     Route: 048
  2. ACTEMRA [Suspect]
     Indication: RHEUMATOID ARTHRITIS
     Route: 042
     Dates: start: 20101110, end: 20111030
  3. LEVOTHYROXINE SODIUM [Concomitant]
     Indication: HYPOTHYROIDISM
  4. PREDNISONE [Concomitant]
     Indication: RHEUMATOID ARTHRITIS
     Route: 048
  5. ISONIAZID [Concomitant]
     Indication: TUBERCULOSIS
     Dosage: DOSE REPORTE AS: 1500/B6
     Route: 048
     Dates: start: 20100924, end: 20110731
  6. CALCITRIOL [Concomitant]
     Indication: MEDICAL DIET
     Route: 048

REACTIONS (4)
  - AMYLOIDOSIS [None]
  - NEPHROPATHY [None]
  - PYREXIA [None]
  - EMBOLIC STROKE [None]
